FAERS Safety Report 5633791-2 (Version None)
Quarter: 2008Q1

REPORT INFORMATION
  Report Type: 
  Country: None (occurrence: None)
  Receive Date: 20080221
  Receipt Date: 20080214
  Transmission Date: 20080703
  Serious: Yes (Hospitalization)
  Sender: FDA-Public Use
  Company Number: CA-ABBOTT-08P-028-0436984-00

PATIENT
  Sex: Female
  Weight: 72.64 kg

DRUGS (1)
  1. HUMIRA [Suspect]
     Indication: CROHN'S DISEASE
     Route: 058
     Dates: start: 20071211

REACTIONS (5)
  - CROHN'S DISEASE [None]
  - CYST [None]
  - CYSTITIS [None]
  - INFECTED CYST [None]
  - INTESTINAL OBSTRUCTION [None]
